FAERS Safety Report 4324933-X (Version None)
Quarter: 2004Q1

REPORT INFORMATION
  Report Type: 
  Country: None (occurrence: None)
  Receive Date: 20040325
  Receipt Date: 20040325
  Transmission Date: 20041129
  Serious: Yes (Hospitalization)
  Sender: FDA-Public Use
  Company Number: None

PATIENT
  Age: 74 Year
  Sex: Male
  Weight: 61.2356 kg

DRUGS (2)
  1. MEMANTINE HCL [Suspect]
     Indication: DEMENTIA ALZHEIMER'S TYPE
     Dosage: 5 MG BID
  2. RIVASTIGMINE [Concomitant]

REACTIONS (2)
  - CARDIAC DISORDER [None]
  - LOSS OF CONSCIOUSNESS [None]
